FAERS Safety Report 11337680 (Version 1)
Quarter: 2015Q3

REPORT INFORMATION
  Report Type: Spontaneous
  Country: US (occurrence: US)
  Receive Date: 20150803
  Receipt Date: 20150803
  Transmission Date: 20151125
  Serious: Yes (Other)
  Sender: FDA-Public Use
  Company Number: US-ELI_LILLY_AND_COMPANY-US200909006396

PATIENT
  Age: 55 Year
  Sex: Female
  Weight: 78.46 kg

DRUGS (3)
  1. L THYROXINE [Concomitant]
     Active Substance: LEVOTHYROXINE SODIUM
     Indication: HYPOTHYROIDISM
     Dosage: 125 UG, DAILY (1/D)
     Dates: start: 2004
  2. ZYPREXA [Suspect]
     Active Substance: OLANZAPINE
     Dosage: 10 MG, UNK
     Dates: start: 20080715, end: 20091001
  3. DIAZEPAM. [Concomitant]
     Active Substance: DIAZEPAM
     Indication: ANXIETY
     Dosage: 10 MG, UNK
     Dates: start: 200707

REACTIONS (3)
  - Diabetes mellitus [Not Recovered/Not Resolved]
  - Glomerular filtration rate decreased [Unknown]
  - Weight increased [Unknown]

NARRATIVE: CASE EVENT DATE: 200909
